APPROVED DRUG PRODUCT: ACETOHEXAMIDE
Active Ingredient: ACETOHEXAMIDE
Strength: 500MG
Dosage Form/Route: TABLET;ORAL
Application: A070870 | Product #001
Applicant: ANI PHARMACEUTICALS INC
Approved: Feb 9, 1987 | RLD: No | RS: No | Type: DISCN